FAERS Safety Report 7753900-9 (Version None)
Quarter: 2011Q3

REPORT INFORMATION
  Report Type: 
  Country: None (occurrence: None)
  Receive Date: 20110915
  Receipt Date: 20110913
  Transmission Date: 20111222
  Serious: Yes (Other)
  Sender: FDA-Public Use
  Company Number: US-PFIZER INC-2010139435

PATIENT
  Sex: Female
  Weight: 48.08 kg

DRUGS (1)
  1. LIPITOR [Suspect]
     Indication: HYPERLIPIDAEMIA
     Dosage: 40 MG, UNK

REACTIONS (5)
  - RASH [None]
  - NIGHT SWEATS [None]
  - LICHENOID KERATOSIS [None]
  - WEIGHT DECREASED [None]
  - PRURITUS [None]
